FAERS Safety Report 6440818-7 (Version None)
Quarter: 2009Q4

REPORT INFORMATION
  Report Type: 
  Country: None (occurrence: None)
  Receive Date: 20091116
  Receipt Date: 20091105
  Transmission Date: 20100525
  Serious: Yes (Hospitalization)
  Sender: FDA-Public Use
  Company Number: US-ASTRAZENECA-2008UW27443

PATIENT
  Age: 41 Year
  Sex: Male

DRUGS (8)
  1. SEROQUEL [Suspect]
     Indication: BIPOLAR DISORDER
     Dosage: 25 MG, 100 MG
     Route: 048
     Dates: start: 20040901, end: 20060101
  2. ABILIFY [Concomitant]
  3. LITHIUM [Concomitant]
  4. LEXAPRO [Concomitant]
  5. NEURONTIN [Concomitant]
  6. WELLBUTRIN [Concomitant]
  7. XANAX [Concomitant]
  8. RITALIN [Concomitant]

REACTIONS (5)
  - DIABETES MELLITUS [None]
  - FOOT OPERATION [None]
  - GASTROOESOPHAGEAL REFLUX DISEASE [None]
  - NERVE INJURY [None]
  - ROAD TRAFFIC ACCIDENT [None]
